FAERS Safety Report 4669087-5 (Version None)
Quarter: 2005Q2

REPORT INFORMATION
  Report Type: 
  Country: None (occurrence: None)
  Receive Date: 20050519
  Receipt Date: 20050509
  Transmission Date: 20051028
  Serious: Yes (Death, Hospitalization, Other)
  Sender: FDA-Public Use
  Company Number: 2005042622

PATIENT
  Age: 62 Year
  Sex: Male
  Weight: 43.8 kg

DRUGS (4)
  1. IRINOTECAN HCL [Suspect]
     Indication: SMALL CELL LUNG CANCER STAGE UNSPECIFIED
     Dosage: 85 MG (INTERMITTENT);  68MG
     Route: 042
     Dates: start: 20041104, end: 20041111
  2. IRINOTECAN HCL [Suspect]
     Indication: SMALL CELL LUNG CANCER STAGE UNSPECIFIED
     Dosage: 85 MG (INTERMITTENT);  68MG
     Route: 042
     Dates: start: 20041214, end: 20050125
  3. CISPLATIN [Suspect]
     Indication: SMALL CELL LUNG CANCER STAGE UNSPECIFIED
     Dosage: 85 MG (INTERMITTENT) IV
     Route: 042
     Dates: start: 20041104, end: 20041118
  4. EXCEGRAN (ZONISAMIDE) [Concomitant]

REACTIONS (9)
  - ASTHENIA [None]
  - DIARRHOEA [None]
  - FLUID RETENTION [None]
  - ILEUS [None]
  - INTESTINAL DILATATION [None]
  - LEUKOPENIA [None]
  - SEPSIS [None]
  - SEPTIC SHOCK [None]
  - THERAPY NON-RESPONDER [None]
